FAERS Safety Report 6335616-9 (Version None)
Quarter: 2009Q3

REPORT INFORMATION
  Report Type: 
  Country: None (occurrence: None)
  Receive Date: 20090826
  Receipt Date: 20090814
  Transmission Date: 20100115
  Serious: Yes (Other)
  Sender: FDA-Public Use
  Company Number: 1000007541

PATIENT
  Sex: Female

DRUGS (3)
  1. ESCITALOPRAM [Suspect]
  2. LAMOTRIGINE [Suspect]
  3. PHENYTOIN [Suspect]

REACTIONS (2)
  - BONE MARROW FAILURE [None]
  - DRUG INTERACTION [None]
